FAERS Safety Report 14117298 (Version 1)
Quarter: 2017Q4

REPORT INFORMATION
  Report Type: Report from Study
  Country: ES (occurrence: ES)
  Receive Date: 20171023
  Receipt Date: 20171023
  Transmission Date: 20180321
  Serious: Yes (Disabling, Other)
  Sender: FDA-Public Use
  Company Number: ES-EXELIXIS-CABO-17010911

PATIENT
  Age: 58 Year
  Sex: Female
  Weight: 56 kg

DRUGS (2)
  1. CABOMETYX [Suspect]
     Active Substance: CABOZANTINIB S-MALATE
     Indication: RENAL CANCER
     Dosage: 60 MG, QD
     Route: 048
     Dates: start: 20170109, end: 20170503
  2. CABOMETYX [Suspect]
     Active Substance: CABOZANTINIB S-MALATE
     Dosage: 20 MG, QD
     Route: 048
     Dates: start: 20170522

REACTIONS (2)
  - Electrolyte imbalance [Recovered/Resolved]
  - Diarrhoea [Recovered/Resolved]

NARRATIVE: CASE EVENT DATE: 20170503
